FAERS Safety Report 6569737-2 (Version None)
Quarter: 2010Q1

REPORT INFORMATION
  Report Type: 
  Country: None (occurrence: None)
  Receive Date: 20100203
  Receipt Date: 20100203
  Transmission Date: 20100710
  Serious: Yes (Other)
  Sender: FDA-Public Use
  Company Number: None

PATIENT
  Age: 77 Year
  Sex: Male
  Weight: 99.7913 kg

DRUGS (1)
  1. GELNIQUE [Suspect]
     Indication: POLLAKIURIA
     Dates: start: 20100120, end: 20100123

REACTIONS (2)
  - APPLICATION SITE INFLAMMATION [None]
  - APPLICATION SITE URTICARIA [None]
